FAERS Safety Report 7894667-3 (Version None)
Quarter: 2011Q4

REPORT INFORMATION
  Report Type: 
  Country: None (occurrence: None)
  Receive Date: 20111102
  Receipt Date: 20111020
  Transmission Date: 20120403
  Serious: Yes (Hospitalization)
  Sender: FDA-Public Use
  Company Number: TPA2011A07055

PATIENT
  Age: 43 Year
  Sex: Male

DRUGS (1)
  1. ADENURIC (FEBUXOSTAT) [Suspect]
     Indication: HYPERURICAEMIA
     Dosage: 80 MG (80 MG, 1 IN 1 D), ORAL
     Route: 048
     Dates: start: 20110801, end: 20110901

REACTIONS (3)
  - DYSGEUSIA [None]
  - GASTROINTESTINAL HYPOMOTILITY [None]
  - HYPOKALAEMIA [None]
